FAERS Safety Report 12285204 (Version 1)
Quarter: 2016Q2

REPORT INFORMATION
  Report Type: Spontaneous
  Country: TR (occurrence: TR)
  Receive Date: 20160420
  Receipt Date: 20160420
  Transmission Date: 20160815
  Serious: Yes (Other)
  Sender: FDA-Public Use
  Company Number: TR-PAR PHARMACEUTICAL COMPANIES-2016SCPR015353

PATIENT

DRUGS (2)
  1. PITOCIN [Suspect]
     Active Substance: OXYTOCIN
     Indication: LABOUR INDUCTION
     Dosage: UNK UNK, UNKNOWN
     Route: 065
  2. PITOCIN [Suspect]
     Active Substance: OXYTOCIN
     Indication: LABOUR STIMULATION

REACTIONS (3)
  - Brachial plexus injury [Unknown]
  - Clavicle fracture [Unknown]
  - Foetal exposure during delivery [Unknown]
